FAERS Safety Report 13138588 (Version 1)
Quarter: 2017Q1

REPORT INFORMATION
  Report Type: Spontaneous
  Country: US (occurrence: US)
  Receive Date: 20170123
  Receipt Date: 20170123
  Transmission Date: 20170428
  Serious: Yes (Other)
  Sender: FDA-Public Use
  Company Number: US-ASTELLAS-2017US002321

PATIENT
  Sex: Male

DRUGS (1)
  1. TARCEVA [Suspect]
     Active Substance: ERLOTINIB HYDROCHLORIDE
     Indication: LUNG NEOPLASM MALIGNANT
     Dosage: 100 MG, ONCE DAILY (1 IN 1 D)
     Route: 048
     Dates: start: 20161202, end: 20170116

REACTIONS (2)
  - Nodule [Unknown]
  - Drug ineffective [Unknown]
